FAERS Safety Report 12639012 (Version 1)
Quarter: 2016Q3

REPORT INFORMATION
  Report Type: Spontaneous
  Country: US (occurrence: US)
  Receive Date: 20160809
  Receipt Date: 20160809
  Transmission Date: 20161109
  Serious: No
  Sender: FDA-Public Use
  Company Number: US-ASTRAZENECA-2016SE71856

PATIENT
  Sex: Male

DRUGS (3)
  1. SEROQUEL XR [Suspect]
     Active Substance: QUETIAPINE FUMARATE
     Indication: DEMENTIA
     Route: 048
  2. SEROQUEL XR [Suspect]
     Active Substance: QUETIAPINE FUMARATE
     Indication: SLEEP DISORDER
     Route: 048
  3. DEPAKOTE [Concomitant]
     Active Substance: DIVALPROEX SODIUM
     Dosage: 250, 250, 250, 3 TIMES A DAY
     Route: 065

REACTIONS (7)
  - Aggression [Unknown]
  - Hangover [Unknown]
  - Fatigue [Unknown]
  - Off label use [Unknown]
  - Product use issue [Unknown]
  - Muscular weakness [Unknown]
  - Somnolence [Unknown]
